FAERS Safety Report 9356975 (Version 1)
Quarter: 2013Q2

REPORT INFORMATION
  Report Type: Spontaneous
  Country: TN (occurrence: TN)
  Receive Date: 20130620
  Receipt Date: 20130620
  Transmission Date: 20140414
  Serious: Yes (Life-Threatening)
  Sender: FDA-Public Use
  Company Number: TN-ROCHE-1239025

PATIENT
  Sex: Female

DRUGS (3)
  1. HERCEPTIN [Suspect]
     Indication: BREAST CANCER METASTATIC
     Route: 065
  2. HERCEPTIN [Suspect]
     Indication: METASTASES TO LUNG
  3. HERCEPTIN [Suspect]
     Indication: OFF LABEL USE

REACTIONS (1)
  - Disease progression [Not Recovered/Not Resolved]
